FAERS Safety Report 15138604 (Version 2)
Quarter: 2018Q3

REPORT INFORMATION
  Report Type: Spontaneous
  Country: US (occurrence: US)
  Receive Date: 20180713
  Receipt Date: 20180920
  Transmission Date: 20181010
  Serious: No
  Sender: FDA-Public Use
  Company Number: US-BIOGEN-2018BI00593488

PATIENT
  Sex: Female

DRUGS (1)
  1. TECFIDERA [Suspect]
     Active Substance: DIMETHYL FUMARATE
     Indication: MULTIPLE SCLEROSIS
     Route: 048
     Dates: start: 20130812, end: 20170314

REACTIONS (5)
  - Dyschromatopsia [Unknown]
  - Dermatitis allergic [Recovered/Resolved]
  - Drug intolerance [Unknown]
  - Treatment failure [Unknown]
  - Breast mass [Unknown]
